FAERS Safety Report 9597642 (Version 1)
Quarter: 2013Q4

REPORT INFORMATION
  Report Type: Spontaneous
  Country: US (occurrence: US)
  Receive Date: 20131004
  Receipt Date: 20131004
  Transmission Date: 20140711
  Serious: No
  Sender: FDA-Public Use
  Company Number: US-AMGEN-USASP2013020032

PATIENT
  Age: 56 Year
  Sex: Female
  Weight: 98.87 kg

DRUGS (7)
  1. ENBREL [Suspect]
     Indication: PRODUCT USED FOR UNKNOWN INDICATION
     Dosage: 50 MG, QWK
     Route: 058
  2. PREDNISONE [Concomitant]
     Dosage: 20 MG, UNK
  3. TAGAMET                            /00397401/ [Concomitant]
     Dosage: 300 MG, UNK
  4. ISONIAZID [Concomitant]
     Dosage: 100 MG, UNK
  5. CLARITIN                           /00917501/ [Concomitant]
     Dosage: 10 MG, UNK
  6. METHOTREXATE [Concomitant]
     Dosage: 20 MG, UNK
  7. VITAMIN B COMPLEX [Concomitant]
     Dosage: 100 UNK

REACTIONS (1)
  - Gastroenteritis viral [Recovered/Resolved]
